FAERS Safety Report 6252092-5 (Version None)
Quarter: 2009Q2

REPORT INFORMATION
  Report Type: 
  Country: None (occurrence: None)
  Receive Date: 20090630
  Receipt Date: 20061119
  Transmission Date: 20091009
  Serious: Yes (Death)
  Sender: FDA-Public Use
  Company Number: US-ROCHE-638921

PATIENT
  Sex: Male

DRUGS (10)
  1. ENFUVIRTIDE [Suspect]
     Route: 065
     Dates: start: 20030718, end: 20040709
  2. ENFUVIRTIDE [Suspect]
     Route: 065
     Dates: start: 20040805, end: 20061119
  3. CRIXIVAN [Concomitant]
     Dates: start: 20030718, end: 20031106
  4. NORVIR [Concomitant]
     Dates: start: 20030718, end: 20031106
  5. TRIZIVIR [Concomitant]
     Dates: start: 20030718, end: 20040709
  6. VIREAD [Concomitant]
     Dosage: DAILY.
     Dates: start: 20030718, end: 20040709
  7. VIREAD [Concomitant]
     Dosage: DAILY.
     Dates: start: 20040805, end: 20060101
  8. APTIVUS [Concomitant]
     Dates: start: 20031106, end: 20040709
  9. ETRAVIRINE [Concomitant]
     Dosage: DRUG: INTELENCE.
     Dates: start: 20040805, end: 20060101
  10. KALETRA [Concomitant]
     Dates: start: 20040805, end: 20060101

REACTIONS (1)
  - DEATH [None]
